FAERS Safety Report 9481013 (Version 2)
Quarter: 2013Q3

REPORT INFORMATION
  Report Type: Spontaneous
  Country: US (occurrence: US)
  Receive Date: 20130828
  Receipt Date: 20130828
  Transmission Date: 20140515
  Serious: Yes (Other)
  Sender: FDA-Public Use
  Company Number: US-AMGEN-KDL124429

PATIENT
  Age: 54 Year
  Sex: Female

DRUGS (2)
  1. ENBREL [Suspect]
     Indication: PSORIATIC ARTHROPATHY
     Dosage: 50 MG, 2 TIMES/WK
     Route: 058
     Dates: start: 20041022
  2. SULFASALAZINE [Concomitant]
     Dosage: 500 MG, QD
     Route: 065

REACTIONS (3)
  - Tuberculin test positive [Unknown]
  - Psoriatic arthropathy [Unknown]
  - Condition aggravated [Unknown]
